FAERS Safety Report 7909493-6 (Version None)
Quarter: 2011Q4

REPORT INFORMATION
  Report Type: 
  Country: None (occurrence: None)
  Receive Date: 20111111
  Receipt Date: 20111102
  Transmission Date: 20120403
  Serious: Yes (Other)
  Sender: FDA-Public Use
  Company Number: JP-JNJFOC-20111102466

PATIENT
  Age: 37 Year
  Sex: Female

DRUGS (3)
  1. AMOXAPINE [Interacting]
     Indication: NEURALGIA
     Route: 048
  2. FENTANYL-100 [Suspect]
     Indication: PROCEDURAL PAIN
     Route: 062
  3. FENTANYL-100 [Suspect]
     Indication: CANCER PAIN
     Route: 062

REACTIONS (4)
  - NEURALGIA [None]
  - DRUG INTERACTION [None]
  - SEROTONIN SYNDROME [None]
  - DRUG EFFECT DECREASED [None]
